FAERS Safety Report 20938944 (Version 1)
Quarter: 2022Q2

REPORT INFORMATION
  Report Type: Spontaneous
  Country: US (occurrence: None)
  Receive Date: 20220608
  Receipt Date: 20220608
  Transmission Date: 20220721
  Serious: No
  Sender: FDA-Public Use
  Company Number: None

PATIENT
  Age: 63 Year
  Sex: Female
  Weight: 191.4 kg

DRUGS (17)
  1. VERZENIO [Suspect]
     Active Substance: ABEMACICLIB
     Indication: Bone cancer
     Dosage: FREQUENCY : TWICE A DAY;?
     Route: 048
     Dates: start: 202204
  2. ASCORBIC ACID [Concomitant]
     Active Substance: ASCORBIC ACID
  3. ATORVASTATIN [Concomitant]
     Active Substance: ATORVASTATIN
  4. B Complex Hair Skin Nails Oral Capsule [Concomitant]
  5. BYDUREON [Concomitant]
  6. CETIRIZINE [Concomitant]
  7. DULOXETINE [Concomitant]
     Active Substance: DULOXETINE
  8. FLUOXETINE [Concomitant]
  9. LANTUS [Concomitant]
  10. HUMALOG [Concomitant]
  11. LISINOPRIL [Concomitant]
  12. MAGNESIUM [Concomitant]
  13. METFORMIN [Concomitant]
  14. PANTOPRAZOLE [Concomitant]
  15. HYDROCHLOROTHIAZIDE\TRIAMTERENE [Concomitant]
     Active Substance: HYDROCHLOROTHIAZIDE\TRIAMTERENE
  16. FASLODEX [Concomitant]
  17. PAMIDRONATE [Concomitant]
     Active Substance: PAMIDRONATE DISODIUM

REACTIONS (4)
  - Blood urea increased [None]
  - Blood creatine increased [None]
  - Blood calcium increased [None]
  - Blood magnesium decreased [None]
